FAERS Safety Report 10083147 (Version 1)
Quarter: 2014Q2

REPORT INFORMATION
  Report Type: Spontaneous
  Country: US (occurrence: US)
  Receive Date: 20140417
  Receipt Date: 20140417
  Transmission Date: 20141212
  Serious: No
  Sender: FDA-Public Use
  Company Number: US-BIOGENIDEC-2014BI035774

PATIENT
  Age: 59 Year
  Sex: Female

DRUGS (3)
  1. AVONEX [Suspect]
     Indication: MULTIPLE SCLEROSIS
     Route: 030
     Dates: start: 20080502
  2. ZOLOFT [Concomitant]
  3. ZOLOFT [Concomitant]

REACTIONS (3)
  - Weight decreased [Recovered/Resolved]
  - Chills [Recovered/Resolved]
  - Anxiety [Unknown]
